FAERS Safety Report 6694588-8 (Version None)
Quarter: 2010Q2

REPORT INFORMATION
  Report Type: 
  Country: None (occurrence: None)
  Receive Date: 20100423
  Receipt Date: 20100412
  Transmission Date: 20101027
  Serious: Yes (Life-Threatening, Hospitalization, Disabling, Other)
  Sender: FDA-Public Use
  Company Number: KR-PFIZER INC-2010046534

PATIENT
  Age: 33 Year
  Sex: Male
  Weight: 88 kg

DRUGS (1)
  1. SILDENAFIL CITRATE [Suspect]
     Indication: ERECTILE DYSFUNCTION
     Dosage: 50 MG,
     Route: 048

REACTIONS (6)
  - BRAIN OEDEMA [None]
  - CEREBRAL HAEMATOMA [None]
  - HYDROCEPHALUS [None]
  - HYPERTENSION [None]
  - QUADRIPARESIS [None]
  - SUBARACHNOID HAEMORRHAGE [None]
